FAERS Safety Report 14119360 (Version 1)
Quarter: 2017Q4

REPORT INFORMATION
  Report Type: Spontaneous
  Country: US (occurrence: None)
  Receive Date: 20171023
  Receipt Date: 20171023
  Transmission Date: 20180321
  Serious: Yes (Death)
  Sender: FDA-Public Use
  Company Number: None

PATIENT
  Age: 30 Year
  Sex: Female

DRUGS (1)
  1. OPSUMIT [Suspect]
     Active Substance: MACITENTAN
     Indication: PULMONARY EMBOLISM
     Route: 048
     Dates: start: 20170928, end: 20171022

REACTIONS (9)
  - Sepsis [None]
  - Agitation [None]
  - Cardio-respiratory arrest [None]
  - Pericardial effusion [None]
  - Unresponsive to stimuli [None]
  - Pyrexia [None]
  - Tachycardia [None]
  - Bradycardia [None]
  - Blood lactic acid increased [None]

NARRATIVE: CASE EVENT DATE: 20171022
